FAERS Safety Report 11808365 (Version 1)
Quarter: 2015Q4

REPORT INFORMATION
  Report Type: Spontaneous
  Country: US (occurrence: US)
  Receive Date: 20151207
  Receipt Date: 20151207
  Transmission Date: 20160305
  Serious: No
  Sender: FDA-Public Use
  Company Number: US-ROCHE-1575966

PATIENT
  Sex: Female

DRUGS (33)
  1. NORMAL SALINE [Concomitant]
     Active Substance: SODIUM CHLORIDE
     Dosage: VIA NEBULIZER, AS REQUIRED
     Route: 042
  2. VICTOZA [Concomitant]
     Active Substance: LIRAGLUTIDE
     Dosage: SQ, EVERY NIGHT AT BEDTIME
     Route: 065
  3. KLOR-CON [Concomitant]
     Active Substance: POTASSIUM CHLORIDE
     Route: 048
  4. ATENOLOL. [Concomitant]
     Active Substance: ATENOLOL
     Route: 048
  5. DETROL LA [Suspect]
     Active Substance: TOLTERODINE TARTRATE
     Indication: FLUID RETENTION
  6. LEVEMIR [Suspect]
     Active Substance: INSULIN DETEMIR
     Indication: RASH
     Route: 065
  7. MORPHINE SULFATE. [Suspect]
     Active Substance: MORPHINE SULFATE
     Indication: AGITATION
     Route: 065
  8. METFORMIN [Concomitant]
     Active Substance: METFORMIN HYDROCHLORIDE
     Route: 048
  9. GOLYTELY [Suspect]
     Active Substance: POLYETHYLENE GLYCOL 3350\POTASSIUM CHLORIDE\SODIUM BICARBONATE\SODIUM CHLORIDE\SODIUM SULFATE ANHYDROUS
     Indication: VOMITING
     Route: 065
  10. ATROVENT [Concomitant]
     Active Substance: IPRATROPIUM BROMIDE
     Dosage: 0.02% VIA NEBULIZER, AS REQUIRED
     Route: 065
  11. LYRICA [Concomitant]
     Active Substance: PREGABALIN
     Route: 048
  12. TALWIN [Suspect]
     Active Substance: PENTAZOCINE LACTATE
     Indication: HALLUCINATION
     Route: 065
  13. ADVAIR DISKUS [Concomitant]
     Active Substance: FLUTICASONE PROPIONATE\SALMETEROL XINAFOATE
     Dosage: 250/50 MCG, 1 PUFF , AS REQUIRED
     Route: 065
  14. VALIUM [Suspect]
     Active Substance: DIAZEPAM
     Indication: DEPRESSION
     Route: 065
  15. SELDANE [Suspect]
     Active Substance: TERFENADINE
     Indication: VOMITING
     Route: 065
  16. ALBUTEROL. [Concomitant]
     Active Substance: ALBUTEROL
     Dosage: 0.83%, AS REQUIRED
     Route: 065
  17. ASPIRIN. [Concomitant]
     Active Substance: ASPIRIN
     Route: 048
  18. DETROL LA [Suspect]
     Active Substance: TOLTERODINE TARTRATE
     Indication: URINARY TRACT INFECTION
     Route: 065
     Dates: start: 2000, end: 2001
  19. ZOVIRAX [Concomitant]
     Active Substance: ACYCLOVIR
     Dosage: AS REQUIRED
     Route: 065
  20. HYDROCHLOROTHIAZIDE. [Concomitant]
     Active Substance: HYDROCHLOROTHIAZIDE
     Route: 048
  21. LANTUS [Concomitant]
     Active Substance: INSULIN GLARGINE
     Dosage: 80 UNITS, SQ
     Route: 065
  22. PREMARIN VAGINAL [Concomitant]
     Active Substance: ESTROGENS, CONJUGATED
     Route: 065
  23. CYANOCOBALAMIN. [Concomitant]
     Active Substance: CYANOCOBALAMIN
     Route: 030
  24. IBUPROFEN. [Suspect]
     Active Substance: IBUPROFEN
     Indication: MOUTH ULCERATION
     Route: 065
  25. COMBIVENT RESPIMAT [Concomitant]
     Active Substance: ALBUTEROL SULFATE\IPRATROPIUM BROMIDE
     Dosage: 20/100 MCG, PUFF, AS REQUIRED
     Route: 065
  26. VITAMIN D3 [Concomitant]
     Active Substance: CHOLECALCIFEROL
     Route: 048
  27. TRICOR [Concomitant]
     Active Substance: FENOFIBRATE
     Route: 046
  28. VITAMIN C [Concomitant]
     Active Substance: ASCORBIC ACID
     Route: 048
  29. PREVACID [Concomitant]
     Active Substance: LANSOPRAZOLE
     Dosage: EVERY NIGHT AT BEDTIME
     Route: 048
  30. NOVOLOG [Concomitant]
     Active Substance: INSULIN ASPART
     Dosage: 30/40 UNITS SQ AC/ MEAL AS REQUIRED
     Route: 065
  31. MYCOLOG-II [Concomitant]
     Active Substance: NYSTATIN\TRIAMCINOLONE ACETONIDE
     Dosage: 0.1% TO AFFECTED AREAS , AS REQUIRED
     Route: 065
  32. LOSARTAN. [Concomitant]
     Active Substance: LOSARTAN
     Dosage: EVERY NIGHT AT BEDTIME
     Route: 048
  33. CYMBALTA [Concomitant]
     Active Substance: DULOXETINE HYDROCHLORIDE
     Route: 048

REACTIONS (3)
  - Urinary tract infection [Unknown]
  - Fluid retention [Unknown]
  - Hypersensitivity [Unknown]
